FAERS Safety Report 9464063 (Version 2)
Quarter: 2013Q3

REPORT INFORMATION
  Report Type: Report from Study
  Country: IT (occurrence: IT)
  Receive Date: 20130819
  Receipt Date: 20130904
  Transmission Date: 20140515
  Serious: Yes (Other)
  Sender: FDA-Public Use
  Company Number: IT-BAYER-2013-097300

PATIENT
  Age: 62 Year
  Sex: Female
  Weight: 45.6 kg

DRUGS (6)
  1. EUTIROX [Concomitant]
     Indication: HYPOTHYROIDISM
     Dosage: 50 MCG DAILY
     Route: 048
     Dates: start: 20121010
  2. NORVASC [Concomitant]
     Indication: HYPERTENSION
     Dosage: 5 MG DAILY
     Route: 048
  3. SORAFENIB (RAF KINASE INHIBITOR) [Suspect]
     Indication: METASTATIC SALIVARY GLAND CANCER
     Dosage: 400 MG, BID
     Route: 048
     Dates: start: 20111202, end: 20120211
  4. SORAFENIB (RAF KINASE INHIBITOR) [Suspect]
     Indication: METASTATIC SALIVARY GLAND CANCER
     Dosage: 300 MG, BID
     Route: 048
     Dates: start: 20120212, end: 20120515
  5. SORAFENIB (RAF KINASE INHIBITOR) [Suspect]
     Indication: METASTATIC SALIVARY GLAND CANCER
     Dosage: 200 MG, BID
     Route: 048
     Dates: start: 20120516, end: 20130807
  6. PANTOPRAZOLE [Concomitant]
     Indication: PROPHYLAXIS
     Dosage: 40 MG DAILY
     Route: 048

REACTIONS (1)
  - Vertebral artery thrombosis [Not Recovered/Not Resolved]
